FAERS Safety Report 24424863 (Version 31)
Quarter: 2025Q2

REPORT INFORMATION
  Report Type: Spontaneous
  Country: US (occurrence: US)
  Receive Date: 20241010
  Receipt Date: 20250606
  Transmission Date: 20250717
  Serious: Yes (Hospitalization, Other)
  Sender: PURDUE
  Company Number: US-PURDUE PHARMA-USA-2024-0312456

PATIENT
  Sex: Male

DRUGS (25)
  1. OXYCODONE HYDROCHLORIDE [Suspect]
     Active Substance: OXYCODONE HYDROCHLORIDE
     Indication: Product used for unknown indication
     Route: 065
  2. OXYCODONE HYDROCHLORIDE [Suspect]
     Active Substance: OXYCODONE HYDROCHLORIDE
     Dosage: 200 MILLIGRAM, Q8H
     Route: 065
  3. BUPRENORPHINE [Suspect]
     Active Substance: BUPRENORPHINE
     Indication: Product used for unknown indication
     Route: 065
  4. BUPRENORPHINE [Suspect]
     Active Substance: BUPRENORPHINE
     Route: 065
     Dates: start: 2020
  5. BUPRENORPHINE [Suspect]
     Active Substance: BUPRENORPHINE
     Route: 065
  6. DILAUDID [Suspect]
     Active Substance: HYDROMORPHONE HYDROCHLORIDE
     Indication: Pain
     Route: 048
  7. HYDROCODONE BITARTRATE [Suspect]
     Active Substance: HYDROCODONE BITARTRATE
     Indication: Product used for unknown indication
     Route: 065
  8. MORPHINE SULFATE [Suspect]
     Active Substance: MORPHINE SULFATE
     Indication: Product used for unknown indication
     Route: 065
  9. FENTANYL [Suspect]
     Active Substance: FENTANYL
     Indication: Product used for unknown indication
     Route: 065
     Dates: start: 2020, end: 2023
  10. HEROIN [Suspect]
     Active Substance: DIAMORPHINE
     Indication: Product used for unknown indication
     Route: 065
     Dates: start: 2008, end: 2011
  11. HEROIN [Suspect]
     Active Substance: DIAMORPHINE
     Route: 065
     Dates: start: 2015, end: 2017
  12. NAPROXEN [Suspect]
     Active Substance: NAPROXEN
     Indication: Pain
     Route: 065
  13. SUBOXONE [Suspect]
     Active Substance: BUPRENORPHINE HYDROCHLORIDE\NALOXONE HYDROCHLORIDE
     Indication: Product used for unknown indication
     Route: 065
  14. SUBOXONE [Suspect]
     Active Substance: BUPRENORPHINE HYDROCHLORIDE\NALOXONE HYDROCHLORIDE
     Route: 065
  15. IRON [Suspect]
     Active Substance: IRON
     Indication: Product used for unknown indication
     Route: 065
  16. MIRTAZAPINE [Suspect]
     Active Substance: MIRTAZAPINE
     Indication: Product used for unknown indication
     Route: 065
  17. COCAINE [Suspect]
     Active Substance: COCAINE
     Indication: Product used for unknown indication
     Route: 065
     Dates: start: 2021
  18. CANNABIS SATIVA SUBSP. INDICA TOP [Suspect]
     Active Substance: CANNABIS SATIVA SUBSP. INDICA TOP
     Indication: Product used for unknown indication
     Route: 065
  19. GABAPENTIN [Concomitant]
     Active Substance: GABAPENTIN
     Indication: Product used for unknown indication
     Route: 065
  20. IBUPROFEN [Concomitant]
     Active Substance: IBUPROFEN
     Indication: Product used for unknown indication
     Route: 065
  21. ATIVAN [Concomitant]
     Active Substance: LORAZEPAM
     Indication: Product used for unknown indication
     Route: 065
  22. PSILOCYBIN [Concomitant]
     Active Substance: PSILOCYBIN
     Indication: Product used for unknown indication
     Route: 065
  23. TYLENOL [Concomitant]
     Active Substance: ACETAMINOPHEN
     Indication: Product used for unknown indication
     Route: 065
  24. OMEPRAZOLE [Concomitant]
     Active Substance: OMEPRAZOLE
     Indication: Product used for unknown indication
     Route: 065
  25. PEPTO-BISMOL [Concomitant]
     Active Substance: BISMUTH SUBSALICYLATE
     Indication: Product used for unknown indication
     Route: 065

REACTIONS (39)
  - Hospitalisation [Unknown]
  - Sepsis [Unknown]
  - Drug withdrawal syndrome [Unknown]
  - Overdose [Unknown]
  - Drug dependence [Recovering/Resolving]
  - Hallucination [Not Recovered/Not Resolved]
  - Drug abuse [Unknown]
  - Mental disorder [Unknown]
  - Abnormal behaviour [Unknown]
  - Emotional distress [Unknown]
  - Drug screen positive [Unknown]
  - Wound [Unknown]
  - Panic disorder [Unknown]
  - Gait disturbance [Unknown]
  - Drug diversion [Unknown]
  - Drug interaction [Unknown]
  - Amnesia [Unknown]
  - Illness [Unknown]
  - Skin exfoliation [Unknown]
  - Dental caries [Unknown]
  - Ageusia [Unknown]
  - Fall [Unknown]
  - Asthenia [Unknown]
  - Vomiting [Unknown]
  - Diarrhoea [Unknown]
  - Drug ineffective [Unknown]
  - Euphoric mood [Unknown]
  - Drug tolerance [Unknown]
  - Respiratory rate decreased [Unknown]
  - Decreased interest [Unknown]
  - Impaired healing [Unknown]
  - Oropharyngeal discomfort [Unknown]
  - Tissue injury [Unknown]
  - Feeling abnormal [Unknown]
  - Counterfeit product administered [Unknown]
  - Cardiovascular disorder [Unknown]
  - Confusional state [Unknown]
  - Anxiety [Unknown]
  - Unevaluable event [Unknown]

NARRATIVE: CASE EVENT DATE: 20200101
